FAERS Safety Report 5805429-2 (Version None)
Quarter: 2008Q3

REPORT INFORMATION
  Report Type: 
  Country: None (occurrence: None)
  Receive Date: 20080710
  Receipt Date: 20080630
  Transmission Date: 20090109
  Serious: Yes (Other)
  Sender: FDA-Public Use
  Company Number: US-JNJFOC-20040905560

PATIENT
  Sex: Female
  Weight: 79.38 kg

DRUGS (5)
  1. DURAGESIC-100 [Suspect]
     Dosage: 100UG/HR PATCH + 50UG/HR PATCH
     Route: 062
  2. DURAGESIC-100 [Suspect]
     Indication: PAIN
     Route: 062
  3. LESCOL [Concomitant]
  4. FOLIC ACID [Concomitant]
  5. SOMA [Concomitant]

REACTIONS (6)
  - APPLICATION SITE IRRITATION [None]
  - CHEST X-RAY ABNORMAL [None]
  - DIVERTICULITIS [None]
  - FATIGUE [None]
  - MENTAL IMPAIRMENT [None]
  - WEIGHT DECREASED [None]
